FAERS Safety Report 5469940-9 (Version None)
Quarter: 2007Q3

REPORT INFORMATION
  Report Type: 
  Country: None (occurrence: None)
  Receive Date: 20070927
  Receipt Date: 20061212
  Transmission Date: 20080115
  Serious: No
  Sender: FDA-Public Use
  Company Number: US-AMGEN-KDL193522

PATIENT
  Sex: Female
  Weight: 87.6 kg

DRUGS (7)
  1. NEUPOGEN [Suspect]
     Indication: CHEMOTHERAPY
     Route: 065
     Dates: start: 20050101, end: 20050101
  2. ADRIAMYCIN PFS [Concomitant]
     Route: 065
  3. TAXOTERE [Concomitant]
     Route: 065
  4. TAXOL [Concomitant]
     Route: 065
  5. HERCEPTIN [Concomitant]
  6. TAMOXIFEN CITRATE [Concomitant]
  7. EFFEXOR [Concomitant]

REACTIONS (3)
  - BONE PAIN [None]
  - PAIN [None]
  - PERIOSTITIS [None]
